FAERS Safety Report 4816167-7 (Version None)
Quarter: 2005Q4

REPORT INFORMATION
  Report Type: 
  Country: None (occurrence: None)
  Receive Date: 20051026
  Receipt Date: 20051018
  Transmission Date: 20060501
  Serious: Yes (Life-Threatening, Hospitalization)
  Sender: FDA-Public Use
  Company Number: FLX20050011

PATIENT
  Age: 1 Day
  Sex: Male
  Weight: 2.975 kg

DRUGS (2)
  1. FLUOXETINE [Suspect]
     Indication: DEPRESSION
     Dosage: 30 MG DAILY OTHR
     Route: 050
     Dates: start: 20040101, end: 20040101
  2. ELTROXIN [Concomitant]

REACTIONS (5)
  - CARDIAC MURMUR [None]
  - DRUG EXPOSURE DURING PREGNANCY [None]
  - ELECTROCARDIOGRAM QT PROLONGED [None]
  - NEONATAL DISORDER [None]
  - VACUUM EXTRACTOR DELIVERY [None]
